FAERS Safety Report 6859560-3 (Version None)
Quarter: 2010Q3

REPORT INFORMATION
  Report Type: 
  Country: None (occurrence: None)
  Receive Date: 20100719
  Receipt Date: 20080301
  Transmission Date: 20110219
  Serious: No
  Sender: FDA-Public Use
  Company Number: US-PFIZER INC-2008020341

PATIENT
  Sex: Male
  Weight: 118.2 kg

DRUGS (8)
  1. CHANTIX [Suspect]
     Indication: SMOKING CESSATION THERAPY
     Dates: start: 20080225
  2. LOVASTATIN [Concomitant]
  3. FENOFIBRATE [Concomitant]
  4. METFORMIN HCL [Concomitant]
  5. TRAZODONE HYDROCHLORIDE [Concomitant]
  6. ULTRAM [Concomitant]
  7. LORTAB [Concomitant]
  8. BENICAR [Concomitant]

REACTIONS (3)
  - DIARRHOEA [None]
  - DIZZINESS [None]
  - NAUSEA [None]
